FAERS Safety Report 4864829-8 (Version None)
Quarter: 2005Q4

REPORT INFORMATION
  Report Type: 
  Country: None (occurrence: None)
  Receive Date: 20051201
  Receipt Date: 20050709
  Transmission Date: 20060501
  Serious: No
  Sender: FDA-Public Use
  Company Number: 2005PV000291

PATIENT
  Age: 49 Year
  Sex: Female
  Weight: 80.2867 kg

DRUGS (17)
  1. BYETTA [Suspect]
     Indication: DIABETES MELLITUS NON-INSULIN-DEPENDENT
     Dosage: 5 MCG; BID; SC; SEE IMAGE
     Route: 058
     Dates: start: 20050702, end: 20050901
  2. BYETTA [Suspect]
     Indication: DIABETES MELLITUS NON-INSULIN-DEPENDENT
     Dosage: 5 MCG; BID; SC; SEE IMAGE
     Route: 058
     Dates: start: 20050901
  3. AMARYL [Concomitant]
  4. GLUCOPHAGE [Concomitant]
  5. DETROL [Concomitant]
  6. SYNTHROID [Concomitant]
  7. ACCUPRIL [Concomitant]
  8. COREG [Concomitant]
  9. XANAX [Concomitant]
  10. EFFEXOR [Concomitant]
  11. PLAVIX [Concomitant]
  12. NITRO-DUR [Concomitant]
  13. LUNESTA [Concomitant]
  14. IMDUR [Concomitant]
  15. NIASPAN [Concomitant]
  16. PREVACID [Concomitant]
  17. ZOCOR [Concomitant]

REACTIONS (7)
  - BLOOD GLUCOSE DECREASED [None]
  - COLD SWEAT [None]
  - DECREASED APPETITE [None]
  - HYPERHIDROSIS [None]
  - INJECTION SITE BRUISING [None]
  - WEIGHT DECREASED [None]
  - WEIGHT INCREASED [None]
